FAERS Safety Report 15956938 (Version 3)
Quarter: 2019Q3

REPORT INFORMATION
  Report Type: Spontaneous
  Country: US (occurrence: US)
  Receive Date: 20190213
  Receipt Date: 20190822
  Transmission Date: 20191004
  Serious: Yes (Other)
  Sender: FDA-Public Use
  Company Number: US-MYLANLABS-2019M1010091

PATIENT
  Age: 59 Year
  Sex: Female
  Weight: 74.38 kg

DRUGS (1)
  1. PERPHENAZINE TABLETS USP [Suspect]
     Active Substance: PERPHENAZINE
     Indication: PSYCHOTIC DISORDER
     Dosage: 32 MILLIGRAM, BID (ONCE IN THE MORNING AND ONCE AT NIGHT  )
     Dates: start: 20190111

REACTIONS (5)
  - Sinusitis [Unknown]
  - Dyspnoea [Unknown]
  - Decreased appetite [Unknown]
  - Drug ineffective [Not Recovered/Not Resolved]
  - Dizziness [Unknown]
